FAERS Safety Report 23730311 (Version 1)
Quarter: 2024Q2

REPORT INFORMATION
  Report Type: Spontaneous
  Country: GB (occurrence: GB)
  Receive Date: 20240411
  Receipt Date: 20240411
  Transmission Date: 20240716
  Serious: Yes (Other)
  Sender: FDA-Public Use
  Company Number: GB-AUROBINDO-AUR-APL-2024-015389

PATIENT
  Age: 47 Year
  Sex: Female

DRUGS (1)
  1. PLERIXAFOR [Suspect]
     Active Substance: PLERIXAFOR
     Indication: Combined immunodeficiency
     Dosage: 0.01 MILLIGRAM/KILOGRAM, TWO TIMES A DAY FOR 3 MONTHS
     Route: 065

REACTIONS (2)
  - Meningitis [Unknown]
  - Headache [Unknown]
